FAERS Safety Report 5228472-3 (Version None)
Quarter: 2007Q1

REPORT INFORMATION
  Report Type: 
  Country: None (occurrence: None)
  Receive Date: 20070131
  Receipt Date: 20070131
  Transmission Date: 20070707
  Serious: No
  Sender: FDA-Public Use
  Company Number: None

PATIENT
  Sex: Female

DRUGS (5)
  1. CIPRO [Suspect]
     Indication: PYELONEPHRITIS
     Dosage: 400 MG X1 IV
     Route: 042
     Dates: start: 20061123
  2. ZANTREX-3 [Concomitant]
  3. TORADOL [Concomitant]
  4. SEPTRA DS [Concomitant]
  5. TYLENOL [Concomitant]

REACTIONS (3)
  - INFUSION RELATED REACTION [None]
  - INFUSION SITE ERYTHEMA [None]
  - RASH MACULAR [None]
